FAERS Safety Report 8675563 (Version 3)
Quarter: 2012Q4

REPORT INFORMATION
  Report Type: 
  Country: BE (occurrence: BE)
  Receive Date: 20120720
  Receipt Date: 20121128
  Transmission Date: 20130627
  Serious: Yes (Hospitalization)
  Sender: FDA-Public Use
  Company Number: BE-MSD-2012SP030448

PATIENT
  Age: 37 Year
  Sex: Male

DRUGS (4)
  1. PEGINTRON [Suspect]
     Indication: HEPATITIS C
     Dosage: 100 microgram, qw
     Dates: start: 20120416, end: 20120625
  2. PEGINTRON [Suspect]
     Dosage: 100 Microgram, qw
     Dates: start: 20120709, end: 201210
  3. PEGINTRON [Suspect]
     Dosage: UNK
  4. REBETOL [Suspect]
     Indication: HEPATITIS C
     Dosage: 1000 mg, bid
     Dates: start: 20120416, end: 201210

REACTIONS (8)
  - Supportive care [Unknown]
  - Feeling abnormal [Not Recovered/Not Resolved]
  - Myalgia [Not Recovered/Not Resolved]
  - Headache [Not Recovered/Not Resolved]
  - Weight decreased [Unknown]
  - Decreased appetite [Unknown]
  - Alopecia [Not Recovered/Not Resolved]
  - Drug ineffective [Unknown]
